FAERS Safety Report 6390344-9 (Version None)
Quarter: 2009Q4

REPORT INFORMATION
  Report Type: 
  Country: None (occurrence: None)
  Receive Date: 20091005
  Receipt Date: 20091005
  Transmission Date: 20100525
  Serious: Yes (Life-Threatening)
  Sender: FDA-Public Use
  Company Number: None

PATIENT
  Age: 75 Year
  Sex: Male

DRUGS (2)
  1. LORAZEPAM [Suspect]
     Indication: ANXIOLYTIC THERAPY
     Dosage: 0.5 MG ONCE IV
     Route: 042
     Dates: start: 20090909, end: 20090909
  2. LORAZEPAM [Suspect]
     Indication: BIOPSY BONE MARROW
     Dosage: 0.5 MG ONCE IV
     Route: 042
     Dates: start: 20090909, end: 20090909

REACTIONS (5)
  - CHEST DISCOMFORT [None]
  - ELECTROCARDIOGRAM CHANGE [None]
  - ISCHAEMIA [None]
  - PARAESTHESIA [None]
  - TACHYCARDIA [None]
